FAERS Safety Report 13073619 (Version 1)
Quarter: 2016Q4

REPORT INFORMATION
  Report Type: Spontaneous
  Country: ES (occurrence: ES)
  Receive Date: 20161229
  Receipt Date: 20161229
  Transmission Date: 20170207
  Serious: Yes (Disabling)
  Sender: FDA-Public Use
  Company Number: ES-JNJFOC-20150906171

PATIENT
  Age: 17 Year
  Sex: Male

DRUGS (4)
  1. SEROQUEL [Suspect]
     Active Substance: QUETIAPINE FUMARATE
     Indication: PRODUCT USED FOR UNKNOWN INDICATION
     Route: 065
     Dates: start: 2016
  2. SERTRALINE [Suspect]
     Active Substance: SERTRALINE HYDROCHLORIDE
     Indication: PRODUCT USED FOR UNKNOWN INDICATION
     Route: 065
     Dates: start: 2016
  3. XEPLION [Suspect]
     Active Substance: PALIPERIDONE PALMITATE
     Indication: AUTISM SPECTRUM DISORDER
     Route: 030
  4. RISPERDAL [Suspect]
     Active Substance: RISPERIDONE
     Indication: PRODUCT USED FOR UNKNOWN INDICATION
     Route: 048
     Dates: start: 2016

REACTIONS (29)
  - Disability [Unknown]
  - Off label use [Unknown]
  - Nerve injury [Unknown]
  - Abnormal behaviour [Unknown]
  - Depression [Unknown]
  - Irritability [Unknown]
  - Bone pain [Unknown]
  - Muscle contracture [Unknown]
  - Dyskinesia [Unknown]
  - Cognitive disorder [Unknown]
  - Sleep disorder [Unknown]
  - Muscle rigidity [Unknown]
  - Boredom [Unknown]
  - Fatigue [Unknown]
  - Impaired self-care [Unknown]
  - Activities of daily living impaired [Unknown]
  - Agitation [Unknown]
  - Fear [Unknown]
  - Language disorder [Unknown]
  - Somnolence [Unknown]
  - Gynaecomastia [Unknown]
  - Myalgia [Unknown]
  - Anhedonia [Unknown]
  - Dizziness [Unknown]
  - Product use issue [Unknown]
  - Feeling abnormal [Unknown]
  - Constipation [Unknown]
  - Stereotypy [Unknown]
  - Paranoia [Unknown]

NARRATIVE: CASE EVENT DATE: 2015
